FAERS Safety Report 7487509-1 (Version None)
Quarter: 2011Q2

REPORT INFORMATION
  Report Type: 
  Country: None (occurrence: None)
  Receive Date: 20110518
  Receipt Date: 20110506
  Transmission Date: 20111010
  Serious: Yes (Hospitalization, Other)
  Sender: FDA-Public Use
  Company Number: US-JNJFOC-20110504158

PATIENT
  Sex: Female
  Weight: 46.27 kg

DRUGS (2)
  1. ELMIRON [Suspect]
     Indication: CYSTITIS INTERSTITIAL
     Route: 048
     Dates: start: 19941001, end: 20100801
  2. ELMIRON [Suspect]
     Route: 048
     Dates: start: 20110401

REACTIONS (3)
  - DRUG INEFFECTIVE [None]
  - THERAPY CESSATION [None]
  - BREAST CANCER [None]
